APPROVED DRUG PRODUCT: ZYCUBO
Active Ingredient: COPPER HISTIDINATE
Strength: 2.9MG/VIAL
Dosage Form/Route: POWDER;SUBCUTANEOUS
Application: N211241 | Product #001
Applicant: SENTYNL THERAPEUTICS INC
Approved: Jan 12, 2026 | RLD: Yes | RS: Yes | Type: RX

EXCLUSIVITY:
Code: NCE | Date: Jan 12, 2031